FAERS Safety Report 23999238 (Version 1)
Quarter: 2024Q2

REPORT INFORMATION
  Report Type: Spontaneous
  Country: US (occurrence: US)
  Receive Date: 20240621
  Receipt Date: 20240621
  Transmission Date: 20240716
  Serious: Yes (Hospitalization, Other)
  Sender: FDA-Public Use
  Company Number: US-SUN PHARMACEUTICAL INDUSTRIES LTD-2024R1-451594

PATIENT
  Age: 22 Year
  Sex: Female

DRUGS (2)
  1. DESOGESTREL\ETHINYL ESTRADIOL [Suspect]
     Active Substance: DESOGESTREL\ETHINYL ESTRADIOL
     Indication: Erythema multiforme
     Dosage: 0.15 MILLIGRAM, DAILY
     Route: 065
  2. DESOGESTREL\ETHINYL ESTRADIOL [Suspect]
     Active Substance: DESOGESTREL\ETHINYL ESTRADIOL
     Dosage: 0.03 MILLIGRAM
     Route: 065

REACTIONS (2)
  - Erythema multiforme [Unknown]
  - Mucosal inflammation [Unknown]
